FAERS Safety Report 9670367 (Version 2)
Quarter: 2013Q4

REPORT INFORMATION
  Report Type: Spontaneous
  Country: US (occurrence: US)
  Receive Date: 20131105
  Receipt Date: 20131126
  Transmission Date: 20140711
  Serious: Yes (Hospitalization, Other)
  Sender: FDA-Public Use
  Company Number: US-RB-060133-13

PATIENT
  Age: 57 Year
  Sex: Male

DRUGS (2)
  1. SUBOXONE FILM [Suspect]
     Indication: DRUG DEPENDENCE
     Dosage: SUBOXONE FILM.
     Route: 060
     Dates: end: 201303
  2. SUBOXONE FILM [Suspect]
     Dosage: SUBOXONE FILM
     Route: 060
     Dates: start: 20130313

REACTIONS (4)
  - Hypertension [Not Recovered/Not Resolved]
  - Abnormal behaviour [Unknown]
  - Cerebrovascular accident [Recovered/Resolved]
  - Rehabilitation therapy [Recovered/Resolved]
